FAERS Safety Report 6747363-X (Version None)
Quarter: 2010Q2

REPORT INFORMATION
  Report Type: 
  Country: None (occurrence: None)
  Receive Date: 20100528
  Receipt Date: 20100525
  Transmission Date: 20101027
  Serious: Yes (Hospitalization)
  Sender: FDA-Public Use
  Company Number: B0529490A

PATIENT
  Age: 65 Year
  Sex: Female

DRUGS (15)
  1. PAROXETINE HCL [Suspect]
  2. METHYLENE BLUE [Suspect]
     Indication: PARATHYROIDECTOMY
     Route: 042
  3. RAMIPRIL [Suspect]
  4. SIMVASTATIN [Suspect]
  5. MIXTARD HUMAN 70/30 [Suspect]
  6. METFORMIN HYDROCHLORIDE [Suspect]
  7. ASPIRIN [Suspect]
  8. ATENOLOL [Suspect]
  9. CARBIMAZOLE [Suspect]
  10. INSULIN HUMAN [Concomitant]
  11. MIDAZOLAM HCL [Concomitant]
     Route: 042
  12. FENTANYL [Concomitant]
     Route: 042
  13. PROPOFOL [Concomitant]
     Route: 042
  14. ROCURONIUM BROMIDE [Concomitant]
     Route: 042
  15. ISOFLURANE [Concomitant]

REACTIONS (5)
  - AGITATION [None]
  - CONFUSIONAL STATE [None]
  - DRUG INTERACTION [None]
  - HYPERPARATHYROIDISM PRIMARY [None]
  - PARATHYROID TUMOUR BENIGN [None]
